FAERS Safety Report 6511834-1 (Version None)
Quarter: 2009Q4

REPORT INFORMATION
  Report Type: 
  Country: None (occurrence: None)
  Receive Date: 20091222
  Receipt Date: 20091211
  Transmission Date: 20100525
  Serious: Yes (Other)
  Sender: FDA-Public Use
  Company Number: PHEH2009US16936

PATIENT
  Sex: Female

DRUGS (6)
  1. RECLAST [Suspect]
     Dosage: UNK
     Dates: start: 20091101
  2. SYNTHROID [Concomitant]
  3. PLAVIX [Concomitant]
  4. CYMBALTA [Concomitant]
  5. DITROPAN [Concomitant]
  6. NEXIUM [Concomitant]

REACTIONS (11)
  - ARTHRALGIA [None]
  - BACK INJURY [None]
  - FALL [None]
  - HEADACHE [None]
  - JOINT RANGE OF MOTION DECREASED [None]
  - MUSCULOSKELETAL PAIN [None]
  - MUSCULOSKELETAL STIFFNESS [None]
  - NECK PAIN [None]
  - OEDEMA PERIPHERAL [None]
  - PAIN [None]
  - REHABILITATION THERAPY [None]
